FAERS Safety Report 16882114 (Version 2)
Quarter: 2020Q3

REPORT INFORMATION
  Report Type: Report from Study
  Country: JP (occurrence: JP)
  Receive Date: 20191003
  Receipt Date: 20200917
  Transmission Date: 20201102
  Serious: Yes (Other)
  Sender: FDA-Public Use
  Company Number: JP-VIIV HEALTHCARE LIMITED-JP2019JPN178266

PATIENT
  Age: 41 Year
  Sex: Male

DRUGS (7)
  1. BAKTAR [Concomitant]
     Active Substance: SULFAMETHOXAZOLE\TRIMETHOPRIM
     Indication: ANTIFUNGAL PROPHYLAXIS
     Dosage: UNK
     Dates: start: 20180807, end: 20180819
  2. PATANOL OPHTHALMIC [Concomitant]
     Indication: SEASONAL ALLERGY
     Dosage: UNK
     Dates: start: 20190111, end: 201906
  3. DESCOVY [Suspect]
     Active Substance: EMTRICITABINE\TENOFOVIR ALAFENAMIDE FUMARATE
     Indication: HIV INFECTION
     Dosage: 1 DF, 1D
     Route: 048
     Dates: start: 20180821
  4. SAMTIREL [Concomitant]
     Active Substance: ATOVAQUONE
     Indication: ANTIFUNGAL PROPHYLAXIS
     Dosage: UNK
     Dates: start: 20180820
  5. RUPAFIN [Concomitant]
     Active Substance: RUPATADINE FUMARATE
     Indication: SEASONAL ALLERGY
     Dosage: UNK
     Dates: start: 20190111, end: 201906
  6. DOLUTEGRAVIR [Suspect]
     Active Substance: DOLUTEGRAVIR
     Indication: HIV INFECTION
     Dosage: 50 MG, 1D
     Route: 048
     Dates: start: 20180821
  7. NEO?MEDROL (JAPAN) [Concomitant]
     Indication: SEASONAL ALLERGY
     Dosage: UNK
     Dates: start: 20190111, end: 201906

REACTIONS (5)
  - Hypertension [Not Recovered/Not Resolved]
  - Seborrhoeic dermatitis [Recovering/Resolving]
  - Hyperuricaemia [Not Recovered/Not Resolved]
  - Pharyngitis bacterial [Recovering/Resolving]
  - Conjunctivitis bacterial [Recovering/Resolving]

NARRATIVE: CASE EVENT DATE: 20180823
